FAERS Safety Report 21932910 (Version 1)
Quarter: 2023Q1

REPORT INFORMATION
  Report Type: Spontaneous
  Country: US (occurrence: US)
  Receive Date: 20230131
  Receipt Date: 20230131
  Transmission Date: 20230417
  Serious: Yes (Other)
  Sender: FDA-Public Use
  Company Number: US-009507513-2301USA010762

PATIENT
  Sex: Male

DRUGS (3)
  1. WELIREG [Suspect]
     Active Substance: BELZUTIFAN
     Route: 048
  2. WELIREG [Suspect]
     Active Substance: BELZUTIFAN
     Dosage: DOSE REDUCED
     Route: 048
  3. WELIREG [Suspect]
     Active Substance: BELZUTIFAN
     Dosage: DOSE REDUCED TO THE LOWEST DOSE
     Route: 048

REACTIONS (1)
  - Hypoxia [Unknown]
